FAERS Safety Report 25451296 (Version 1)
Quarter: 2025Q2

REPORT INFORMATION
  Report Type: Spontaneous
  Country: GB (occurrence: GB)
  Receive Date: 20250618
  Receipt Date: 20250618
  Transmission Date: 20250716
  Serious: Yes (Hospitalization)
  Sender: MYLAN
  Company Number: GB-MYLANLABS-2025M1050234

PATIENT
  Sex: Male

DRUGS (1)
  1. CLOZARIL [Suspect]
     Active Substance: CLOZAPINE
     Indication: Schizophrenia
     Dosage: 200 MILLIGRAM, PM
     Dates: start: 20241216, end: 20250608

REACTIONS (5)
  - Hospitalisation [Unknown]
  - Haemoglobin increased [Unknown]
  - Product dose omission issue [Unknown]
  - Malaise [Unknown]
  - Tachycardia [Unknown]
